FAERS Safety Report 8670360 (Version 2)
Quarter: 2015Q2

REPORT INFORMATION
  Report Type: Report from Study
  Country: US (occurrence: US)
  Receive Date: 20120718
  Receipt Date: 20150626
  Transmission Date: 20150821
  Serious: Yes (Death)
  Sender: FDA-Public Use
  Company Number: US-ROCHE-1087521

PATIENT
  Sex: Female

DRUGS (5)
  1. LUCENTIS [Suspect]
     Active Substance: RANIBIZUMAB
     Indication: VEIN DISORDER
     Route: 050
  2. ERYTHROMYCIN. [Concomitant]
     Active Substance: ERYTHROMYCIN
     Route: 065
  3. TETRAVISC [Concomitant]
     Active Substance: TETRACAINE HYDROCHLORIDE
     Route: 065
  4. BETADINE [Concomitant]
     Active Substance: POVIDONE-IODINE
  5. ZYMAR [Concomitant]
     Active Substance: GATIFLOXACIN

REACTIONS (4)
  - Death [Fatal]
  - Visual acuity reduced [Unknown]
  - Joint swelling [Unknown]
  - Arthralgia [Unknown]
